FAERS Safety Report 19674200 (Version 1)
Quarter: 2021Q3

REPORT INFORMATION
  Report Type: Spontaneous
  Country: US (occurrence: US)
  Receive Date: 20210809
  Receipt Date: 20210809
  Transmission Date: 20211014
  Serious: Yes (Death, Hospitalization, Other)
  Sender: FDA-Public Use
  Company Number: US-AMGEN-USASP2021119933

PATIENT

DRUGS (4)
  1. MITOXANTRONE [Concomitant]
     Active Substance: MITOXANTRONE HYDROCHLORIDE
     Dosage: 10 MICROGRAM/SQ. METER, FOR 3 DAYS ON DAYS 2?4
     Route: 042
  2. CYTARABINE. [Concomitant]
     Active Substance: CYTARABINE
     Dosage: 2000 MICROGRAM/SQ. METER, QD, ON DAYS 2?6
     Route: 042
  3. CLADRIBINE. [Concomitant]
     Active Substance: CLADRIBINE
     Dosage: 5 MICROGRAM/SQ. METER, QD, ON DAYS 2?6 GIVEN 2 H PRIOR TO CYTARABINE
     Route: 042
  4. FILGRASTIM [Suspect]
     Active Substance: FILGRASTIM
     Indication: PROPHYLAXIS
     Dosage: 300 MICROGRAM, QD, FROM DAYS 1?6
     Route: 058

REACTIONS (9)
  - Death [Fatal]
  - Infection [Fatal]
  - Hyperbilirubinaemia [Unknown]
  - Therapeutic product effect incomplete [Unknown]
  - Disease progression [Fatal]
  - Haemorrhage [Unknown]
  - Febrile neutropenia [Unknown]
  - Hospitalisation [Unknown]
  - Cytopenia [Unknown]
